FAERS Safety Report 16362021 (Version 1)
Quarter: 2019Q3

REPORT INFORMATION
  Report Type: Spontaneous
  Country: US (occurrence: US)
  Receive Date: 20190525
  Receipt Date: 20190525
  Transmission Date: 20191004
  Serious: Yes (Disabling)
  Sender: FDA-Public Use
  Company Number: None

PATIENT
  Age: 74 Year
  Sex: Male

DRUGS (3)
  1. LOPRESSOR [Concomitant]
     Active Substance: METOPROLOL TARTRATE
  2. ASPIRIN. [Concomitant]
     Active Substance: ASPIRIN
  3. LIPITOR [Suspect]
     Active Substance: ATORVASTATIN CALCIUM
     Indication: BLOOD CHOLESTEROL INCREASED
     Dates: start: 19970101, end: 20171215

REACTIONS (11)
  - Myalgia [None]
  - Glucose tolerance impaired [None]
  - Decreased appetite [None]
  - Vision blurred [None]
  - Gait inability [None]
  - Amnesia [None]
  - Confusional state [None]
  - Chromaturia [None]
  - Muscle atrophy [None]
  - Fatigue [None]
  - Renal failure [None]

NARRATIVE: CASE EVENT DATE: 20000101
